FAERS Safety Report 14629988 (Version 1)
Quarter: 2018Q1

REPORT INFORMATION
  Report Type: Spontaneous
  Country: US (occurrence: US)
  Receive Date: 20180313
  Receipt Date: 20180313
  Transmission Date: 20180509
  Serious: Yes (Other)
  Sender: FDA-Public Use
  Company Number: US-AAA-201800042

PATIENT
  Age: 55 Year
  Sex: Female
  Weight: 55.9 kg

DRUGS (1)
  1. NETSPOT [Suspect]
     Active Substance: DOTATATE GALLIUM GA-68
     Indication: POSITRON EMISSION TOMOGRAM
     Route: 042
     Dates: start: 20180307, end: 20180307

REACTIONS (6)
  - Urticaria [Recovered/Resolved]
  - Skin swelling [None]
  - Pruritus [Recovered/Resolved]
  - Skin irritation [None]
  - Hypersensitivity [Recovered/Resolved]
  - Erythema [None]

NARRATIVE: CASE EVENT DATE: 20180307
